FAERS Safety Report 5314960-8 (Version None)
Quarter: 2007Q2

REPORT INFORMATION
  Report Type: 
  Country: None (occurrence: None)
  Receive Date: 20070502
  Receipt Date: 20070426
  Transmission Date: 20071010
  Serious: Yes (Death)
  Sender: FDA-Public Use
  Company Number: PHBS2007US07329

PATIENT
  Age: 66 Year
  Sex: Male

DRUGS (7)
  1. CYCLOSPORINE [Suspect]
     Indication: HEART TRANSPLANT
     Route: 065
  2. SIMVASTATIN [Suspect]
     Dosage: 10 MG/D
     Route: 065
  3. SIMVASTATIN [Suspect]
     Dosage: 60 MG/D
     Route: 065
  4. COLCHICINE [Suspect]
     Indication: GOUT
     Dosage: 0.6 MG, QD
     Route: 065
  5. COLCHICINE [Suspect]
     Dosage: 0.6 MG, BID
     Route: 065
  6. MYCOPHENOLIC ACID [Concomitant]
     Indication: HEART TRANSPLANT
     Route: 065
  7. PREDNISONE TAB [Concomitant]
     Indication: HEART TRANSPLANT
     Route: 065

REACTIONS (10)
  - BLOOD CREATINE PHOSPHOKINASE INCREASED [None]
  - DRUG INTERACTION [None]
  - ELECTROMYOGRAM ABNORMAL [None]
  - GOUT [None]
  - MUSCULAR WEAKNESS [None]
  - MYALGIA [None]
  - MYOPATHY TOXIC [None]
  - OPHTHALMOPLEGIA [None]
  - QUADRIPLEGIA [None]
  - SEPSIS [None]
